FAERS Safety Report 4423127-7 (Version None)
Quarter: 2004Q3

REPORT INFORMATION
  Report Type: 
  Country: None (occurrence: None)
  Receive Date: 20040811
  Receipt Date: 20040329
  Transmission Date: 20050211
  Serious: Yes (Hospitalization, Disabling, Other)
  Sender: FDA-Public Use
  Company Number: US-MERCK-0403USA02556

PATIENT
  Age: 79 Year
  Sex: Female
  Weight: 76 kg

DRUGS (10)
  1. [THERAPY UNSPECIFIED] [Concomitant]
     Indication: HYPERSENSITIVITY
     Route: 065
  2. COUGH, COLD, AND FLU THERAPIES (UNSPECIFIED) [Concomitant]
     Route: 065
  3. BENADRYL [Concomitant]
     Route: 065
  4. ATIVAN [Concomitant]
     Route: 065
  5. SINGULAIR [Suspect]
     Indication: RHINITIS ALLERGIC
     Route: 048
     Dates: start: 20030601, end: 20040201
  6. SINGULAIR [Suspect]
     Route: 048
     Dates: start: 20040101
  7. SINGULAIR [Suspect]
     Indication: FOOD ALLERGY
     Route: 048
     Dates: start: 20030601, end: 20040201
  8. SINGULAIR [Suspect]
     Route: 048
     Dates: start: 20040101
  9. PRILOSEC [Concomitant]
     Route: 065
  10. ARISTOCORT [Concomitant]
     Route: 065

REACTIONS (14)
  - ABDOMINAL DISTENSION [None]
  - ARTHRALGIA [None]
  - DRUG INEFFECTIVE [None]
  - DYSPNOEA [None]
  - EAR PAIN [None]
  - FEELING ABNORMAL [None]
  - GASTROINTESTINAL DISORDER [None]
  - GASTROOESOPHAGEAL REFLUX DISEASE [None]
  - MYALGIA [None]
  - PAIN IN JAW [None]
  - PARATHYROID DISORDER [None]
  - PHARYNGOLARYNGEAL PAIN [None]
  - SLEEP APNOEA SYNDROME [None]
  - STOMACH DISCOMFORT [None]
